FAERS Safety Report 18468498 (Version 3)
Quarter: 2020Q4

REPORT INFORMATION
  Report Type: Spontaneous
  Country: SE (occurrence: SE)
  Receive Date: 20201105
  Receipt Date: 20201207
  Transmission Date: 20210114
  Serious: Yes (Hospitalization, Other)
  Sender: FDA-Public Use
  Company Number: NVSC2020SE295824

PATIENT
  Age: 9 Month
  Sex: Female
  Weight: 2.62 kg

DRUGS (10)
  1. AZATHIOPRINE. [Suspect]
     Active Substance: AZATHIOPRINE
     Indication: FOETAL EXPOSURE DURING PREGNANCY
     Dosage: MATERNAL DOSE: 2 MG/KG, QD
     Route: 064
  2. AZATHIOPRINE. [Suspect]
     Active Substance: AZATHIOPRINE
     Dosage: MATERNAL DOSE: 125 MG
     Route: 064
  3. PROGESTERONE. [Suspect]
     Active Substance: PROGESTERONE
     Dosage: MATERNAL DOSE: UNK
     Route: 064
  4. ESTRADIOL. [Suspect]
     Active Substance: ESTRADIOL
     Indication: FOETAL EXPOSURE DURING PREGNANCY
     Dosage: MATERNAL DOSE: 2 MG, QD
     Route: 064
  5. LOVENOX [Suspect]
     Active Substance: ENOXAPARIN SODIUM
     Indication: FOETAL EXPOSURE DURING PREGNANCY
     Dosage: MATERNAL DOSE: 4000 IU, QD
     Route: 064
  6. HEPARIN [Suspect]
     Active Substance: HEPARIN SODIUM
     Indication: FOETAL EXPOSURE DURING PREGNANCY
     Dosage: MATERNAL DOSE: LOW MOLECULAR WEIGHT
     Route: 064
  7. TACROLIMUS. [Suspect]
     Active Substance: TACROLIMUS
     Indication: FOETAL EXPOSURE DURING PREGNANCY
     Dosage: MATERNAL DOSE: 4 MG
     Route: 064
  8. ACETYLSALICYLIC ACID [Suspect]
     Active Substance: ASPIRIN
     Indication: FOETAL EXPOSURE DURING PREGNANCY
     Dosage: MATERNAL DOSE: 81 MG, QD
     Route: 064
  9. PROGESTERONE. [Suspect]
     Active Substance: PROGESTERONE
     Indication: FOETAL EXPOSURE DURING PREGNANCY
     Dosage: MATERNAL DOSE: UNK
     Route: 064
  10. ACETYLSALICYLIC ACID [Suspect]
     Active Substance: ASPIRIN
     Dosage: MATERNAL DOSE: 160 MG, QD FROM WEEK 12
     Route: 064

REACTIONS (4)
  - Exposure via breast milk [Unknown]
  - Foetal exposure during pregnancy [Unknown]
  - Bronchiolitis [Unknown]
  - Premature baby [Unknown]
